FAERS Safety Report 4917163-1 (Version None)
Quarter: 2006Q1

REPORT INFORMATION
  Report Type: 
  Country: None (occurrence: None)
  Receive Date: 20060221
  Receipt Date: 20060131
  Transmission Date: 20060701
  Serious: Yes (Other)
  Sender: FDA-Public Use
  Company Number: TR-AVENTIS-200610635EU

PATIENT
  Age: 43 Year
  Sex: Male
  Weight: 105 kg

DRUGS (7)
  1. NITROGLYCERIN [Suspect]
     Indication: BLOOD PRESSURE INCREASED
     Route: 042
  2. NITROGLYCERIN [Suspect]
     Route: 042
  3. NIFEDIPINE [Concomitant]
     Indication: HYPERTENSION
     Route: 060
  4. THIOPENTAL SODIUM [Concomitant]
     Indication: INDUCTION OF ANAESTHESIA
  5. FENTANYL [Concomitant]
     Indication: INDUCTION OF ANAESTHESIA
  6. ATRACURIUM [Concomitant]
     Indication: INDUCTION OF ANAESTHESIA
  7. ISOFLURANE [Concomitant]
     Indication: ANAESTHESIA

REACTIONS (2)
  - BLOOD PRESSURE INCREASED [None]
  - HYPOXIA [None]
